FAERS Safety Report 6170792-2 (Version None)
Quarter: 2009Q2

REPORT INFORMATION
  Report Type: 
  Country: None (occurrence: None)
  Receive Date: 20090427
  Receipt Date: 20090421
  Transmission Date: 20091009
  Serious: Yes (Other)
  Sender: FDA-Public Use
  Company Number: CHPA2009US09954

PATIENT
  Age: 28 Year
  Sex: Male
  Weight: 97.5 kg

DRUGS (4)
  1. NICOTINE [Suspect]
     Indication: SMOKING CESSATION THERAPY
     Dosage: 21 MG, QD, TRANSDERMAL
     Route: 062
     Dates: start: 20090420, end: 20090420
  2. SEROQUEL [Concomitant]
  3. STRATTERA [Concomitant]
  4. PEPCO (FAMOTIDINE) [Concomitant]

REACTIONS (3)
  - DYSPHAGIA [None]
  - HALLUCINATION [None]
  - RASH PAPULAR [None]
